FAERS Safety Report 5535653-8 (Version None)
Quarter: 2007Q4

REPORT INFORMATION
  Report Type: 
  Country: None (occurrence: None)
  Receive Date: 20071206
  Receipt Date: 20070206
  Transmission Date: 20080405
  Serious: Yes (Hospitalization, Other)
  Sender: FDA-Public Use
  Company Number: US-AMGEN-US208314

PATIENT
  Sex: Male

DRUGS (15)
  1. ENBREL [Suspect]
     Indication: RHEUMATOID ARTHRITIS
     Route: 058
     Dates: start: 20040101
  2. METHOTREXATE [Concomitant]
     Route: 065
  3. RELAFEN [Concomitant]
     Route: 065
  4. PREVACID [Concomitant]
     Route: 065
  5. FOLIC ACID [Concomitant]
     Route: 065
  6. VIAGRA [Concomitant]
     Route: 065
  7. MOMETASONE FUROATE [Concomitant]
     Route: 055
  8. MECLIZINE [Concomitant]
     Route: 065
  9. ATIVAN [Concomitant]
     Route: 065
  10. SEREVENT [Concomitant]
     Route: 065
  11. ALBUTEROL [Concomitant]
     Route: 055
  12. DARVOCET [Concomitant]
     Route: 065
  13. ASPIRIN [Concomitant]
     Route: 065
  14. PREDNISONE TAB [Concomitant]
  15. METOCLOPRAMIDE [Concomitant]

REACTIONS (10)
  - ACUTE STRESS DISORDER [None]
  - ANXIETY [None]
  - CEREBROVASCULAR ACCIDENT [None]
  - CONVULSION [None]
  - DYSARTHRIA [None]
  - INFLUENZA [None]
  - NAUSEA [None]
  - RHEUMATOID ARTHRITIS [None]
  - SINUSITIS [None]
  - YELLOW SKIN [None]
